FAERS Safety Report 4365096-4 (Version None)
Quarter: 2004Q2

REPORT INFORMATION
  Report Type: 
  Country: None (occurrence: None)
  Receive Date: 20040520
  Receipt Date: 20040505
  Transmission Date: 20050107
  Serious: No
  Sender: FDA-Public Use
  Company Number: D01200401585

PATIENT
  Age: 79 Year

DRUGS (4)
  1. (FONDAPARINUX) - SOLUTION - UNIT DOSE : UNKNOWN [Suspect]
     Indication: MYOCARDIAL INFARCTION
     Dosage: 2.5 MG QD
     Route: 058
     Dates: start: 20040503
  2. ASPIRIN [Concomitant]
  3. PLAVIX [Concomitant]
  4. AGRASTAT (TIROFIBAN HYDROCHLORIDE) [Concomitant]

REACTIONS (3)
  - CATHETER RELATED COMPLICATION [None]
  - DRUG INEFFECTIVE [None]
  - THROMBOSIS [None]
